FAERS Safety Report 10618974 (Version 1)
Quarter: 2014Q4

REPORT INFORMATION
  Report Type: Spontaneous
  Country: GB (occurrence: None)
  Receive Date: 20141126
  Receipt Date: 20141126
  Transmission Date: 20150529
  Serious: Yes (Life-Threatening)
  Sender: FDA-Public Use
  Company Number: FK201405427

PATIENT
  Age: 45 Year
  Sex: Female

DRUGS (7)
  1. MORPHINE (MANUFACTURER UNKNOWN) (MORPHINE) (MORPHINE) [Suspect]
     Active Substance: MORPHINE
     Indication: MAINTENANCE OF ANAESTHESIA
     Route: 042
  2. NITROUS OXIDE. [Concomitant]
     Active Substance: NITROUS OXIDE
  3. ROCURONIUM BROMIDE. [Concomitant]
     Active Substance: ROCURONIUM BROMIDE
  4. SEVOFLURANE. [Concomitant]
     Active Substance: SEVOFLURANE
  5. MIDAZOLAM [Concomitant]
     Active Substance: MIDAZOLAM\MIDAZOLAM HYDROCHLORIDE
  6. PROPOFOL. [Concomitant]
     Active Substance: PROPOFOL
  7. FENTANYL. [Concomitant]
     Active Substance: FENTANYL

REACTIONS (1)
  - Anaphylactic reaction [None]
